FAERS Safety Report 10096186 (Version 1)
Quarter: 2014Q2

REPORT INFORMATION
  Report Type: Spontaneous
  Country: US (occurrence: US)
  Receive Date: 20140422
  Receipt Date: 20140422
  Transmission Date: 20141212
  Serious: Yes (Disabling, Other)
  Sender: FDA-Public Use
  Company Number: US-TEVA-476183USA

PATIENT
  Sex: Female
  Weight: 72.41 kg

DRUGS (9)
  1. COPAXONE [Suspect]
  2. AMPYRA [Suspect]
     Indication: GAIT DISTURBANCE
     Dosage: 20 MILLIGRAM DAILY;
     Route: 048
     Dates: start: 20131029, end: 201311
  3. AMPYRA [Suspect]
     Dosage: 10 MILLIGRAM DAILY;
     Route: 048
     Dates: start: 20131104
  4. AMPYRA [Suspect]
     Dosage: 20 MILLIGRAM DAILY;
     Route: 048
  5. AMPYRA [Suspect]
     Dosage: 10 MILLIGRAM DAILY;
     Route: 048
     Dates: end: 20140322
  6. AMPYRA [Suspect]
     Dosage: 20 MILLIGRAM DAILY;
     Route: 048
     Dates: start: 20140323
  7. AMPYRA [Suspect]
     Dosage: 10 MILLIGRAM DAILY;
     Route: 048
  8. AVONEX [Suspect]
     Indication: PRODUCT USED FOR UNKNOWN INDICATION
  9. MULTIVITAMIN [Concomitant]

REACTIONS (13)
  - Abasia [Recovered/Resolved]
  - Muscle spasticity [Recovering/Resolving]
  - Mobility decreased [Recovering/Resolving]
  - Joint lock [Recovering/Resolving]
  - Anxiety [Recovering/Resolving]
  - Nervousness [Recovering/Resolving]
  - Depression [Recovering/Resolving]
  - Tremor [Recovered/Resolved]
  - Dyspnoea [Unknown]
  - Pain in extremity [Unknown]
  - Asthenia [Recovered/Resolved]
  - Fatigue [Unknown]
  - Paraesthesia [Recovering/Resolving]
